FAERS Safety Report 8765376 (Version 1)
Quarter: 2012Q4

REPORT INFORMATION
  Report Type: 
  Country: US (occurrence: US)
  Receive Date: 20120830
  Receipt Date: 20120830
  Transmission Date: 20130627
  Serious: Yes (Hospitalization, Other)
  Sender: FDA-Public Use
  Company Number: US-ELI_LILLY_AND_COMPANY-US201208008030

PATIENT
  Sex: Male

DRUGS (7)
  1. ZYPREXA ZYDIS [Suspect]
     Indication: BIPOLAR DISORDER
     Dosage: 15 mg, qd
     Route: 048
     Dates: start: 2005
  2. ZYPREXA ZYDIS [Suspect]
     Dosage: 20 mg, qd
     Route: 048
  3. OLANZAPINE [Suspect]
     Indication: BIPOLAR DISORDER
     Dosage: 15 mg, qd
     Route: 048
  4. OLANZAPINE [Suspect]
     Dosage: 20 mg, qd
     Route: 048
  5. OLANZAPINE [Suspect]
     Indication: BIPOLAR DISORDER
     Dosage: 20 mg, UNK
     Route: 048
  6. SEROQUEL [Concomitant]
  7. OLANZAPINE [Concomitant]
     Indication: BIPOLAR DISORDER
     Dosage: UNK
     Route: 048

REACTIONS (3)
  - Psychotic disorder [Unknown]
  - Drug ineffective [Unknown]
  - Wrong technique in drug usage process [Unknown]
